FAERS Safety Report 20631250 (Version 3)
Quarter: 2022Q4

REPORT INFORMATION
  Report Type: Report from Study
  Country: US (occurrence: US)
  Receive Date: 20220324
  Receipt Date: 20221012
  Transmission Date: 20230112
  Serious: Yes (Hospitalization, Other)
  Sender: FDA-Public Use
  Company Number: US-MALLINCKRODT-T202201065

PATIENT
  Age: 0 Year
  Sex: Male
  Weight: 11 kg

DRUGS (9)
  1. CORTICOTROPIN [Suspect]
     Active Substance: CORTICOTROPIN
     Indication: Infantile spasms
     Dosage: FIRST AND SECOND WEEKS 150 UNITS/M2/DAY DIVIDED TO 2 DOSES- 35.2 UNITS OR 0.44 CC TWICE A DAY
     Route: 030
     Dates: start: 20210228
  2. CORTICOTROPIN [Suspect]
     Active Substance: CORTICOTROPIN
     Dosage: NEXT THREE DAYS, 30 UNITS/M2/DAY 1 DOSE IN AM-14.4 UNITS OR 0.18 CC ONCE EACH AM ONLY.
     Route: 030
  3. CORTICOTROPIN [Suspect]
     Active Substance: CORTICOTROPIN
     Dosage: NEXT THREE DAYS, 15 UNITS/M2/DAY 1 DOSE IN AM-7.2 UNITS OR 0.09 CC ONCE EACH AM ONLY
     Route: 030
  4. CORTICOTROPIN [Suspect]
     Active Substance: CORTICOTROPIN
     Dosage: NEXT THREE DAYS, 10 UNITS/M2/DAY 1 DOSE IN AM-4.8 UNITS OR 0.06 CC ONCE EACH AM ONLY
     Route: 030
  5. CORTICOTROPIN [Suspect]
     Active Substance: CORTICOTROPIN
     Dosage: NEXT SIX DAYS, 10 UNITS/M2/DAY 1 DOSE EVERY OTHER DAY, 4.8 UNITS OR 0.09 CC ONCE EACH AM ONLY
     Route: 030
  6. CORTICOTROPIN [Suspect]
     Active Substance: CORTICOTROPIN
     Dosage: 0.38 MILLILITER, BID FOR 14 DAYS
     Route: 030
     Dates: start: 20220302, end: 2022
  7. CORTICOTROPIN [Suspect]
     Active Substance: CORTICOTROPIN
     Dosage: 0.05 MILLILITER, QD (DAILY)
     Route: 030
     Dates: start: 2022
  8. KLONOPIN [Suspect]
     Active Substance: CLONAZEPAM
     Indication: Product used for unknown indication
     Dosage: UNK
     Route: 065
  9. KLONOPIN [Suspect]
     Active Substance: CLONAZEPAM
     Dosage: UNK, CUT DOWN
     Route: 065

REACTIONS (15)
  - Dehydration [Unknown]
  - Viral diarrhoea [Recovered/Resolved]
  - Infantile spasms [Not Recovered/Not Resolved]
  - Condition aggravated [Not Recovered/Not Resolved]
  - Central nervous system haemorrhage [Unknown]
  - Central nervous system lesion [Unknown]
  - Immunodeficiency [Unknown]
  - Mobility decreased [Unknown]
  - Flatulence [Not Recovered/Not Resolved]
  - Abdominal discomfort [Not Recovered/Not Resolved]
  - Abdominal distension [Not Recovered/Not Resolved]
  - Weight increased [Not Recovered/Not Resolved]
  - Injection site pain [Unknown]
  - Hyperphagia [Not Recovered/Not Resolved]
  - Personality change [Recovering/Resolving]

NARRATIVE: CASE EVENT DATE: 20220301
